FAERS Safety Report 13988838 (Version 1)
Quarter: 2017Q3

REPORT INFORMATION
  Report Type: Spontaneous
  Country: US (occurrence: US)
  Receive Date: 20170919
  Receipt Date: 20170919
  Transmission Date: 20171128
  Serious: Yes (Disabling)
  Sender: FDA-Public Use
  Company Number: None

PATIENT
  Age: 71 Year
  Sex: Female
  Weight: 58.5 kg

DRUGS (8)
  1. RECLAST [Suspect]
     Active Substance: ZOLEDRONIC ACID
     Indication: OSTEOPOROSIS
     Dosage: INTRAVENOUS 1 TIME A YEAR?
     Route: 042
     Dates: start: 20141020
  2. SYNTHROID [Concomitant]
     Active Substance: LEVOTHYROXINE SODIUM
  3. GLUCOSAMINE CHONDROITIN [Concomitant]
     Active Substance: CHONDROITIN SULFATE (BOVINE)\GLUCOSAMINE HYDROCHLORIDE
  4. NORVASC [Concomitant]
     Active Substance: AMLODIPINE BESYLATE
  5. STOOL SOFTENER (DOCUSATE) [Concomitant]
     Active Substance: DOCUSATE
  6. CALCIUM PLUS VITAMIN D3 [Concomitant]
  7. COUMADIN [Concomitant]
     Active Substance: WARFARIN SODIUM
  8. ZOLOFT [Concomitant]
     Active Substance: SERTRALINE HYDROCHLORIDE

REACTIONS (11)
  - Hypoaesthesia [None]
  - Impaired work ability [None]
  - Impaired healing [None]
  - Balance disorder [None]
  - Fall [None]
  - Nerve compression [None]
  - Dysgraphia [None]
  - Gait disturbance [None]
  - Exercise tolerance decreased [None]
  - Fear of disease [None]
  - Peroneal nerve palsy [None]

NARRATIVE: CASE EVENT DATE: 20141020
